FAERS Safety Report 5010078-2 (Version None)
Quarter: 2006Q2

REPORT INFORMATION
  Report Type: 
  Country: None (occurrence: None)
  Receive Date: 20060523
  Receipt Date: 20060510
  Transmission Date: 20061013
  Serious: Yes (Hospitalization)
  Sender: FDA-Public Use
  Company Number: 2006053354

PATIENT
  Age: 70 Year
  Sex: Male

DRUGS (1)
  1. ESTRACYT (ESTRAMUSTINE PHOSPHATE SODIUM) [Suspect]
     Indication: PROSTATE CANCER
     Dosage: 420 MG, ORAL
     Route: 048
     Dates: start: 20051109, end: 20051116

REACTIONS (3)
  - DYSARTHRIA [None]
  - DYSLALIA [None]
  - HEMIPLEGIA [None]
